FAERS Safety Report 4905999-2 (Version None)
Quarter: 2006Q1

REPORT INFORMATION
  Report Type: 
  Country: None (occurrence: None)
  Receive Date: 20060206
  Receipt Date: 20060131
  Transmission Date: 20060701
  Serious: Yes (Hospitalization)
  Sender: FDA-Public Use
  Company Number: 2005BI017805

PATIENT
  Age: 45 Year
  Sex: Female

DRUGS (8)
  1. AVONEX [Suspect]
     Indication: MULTIPLE SCLEROSIS
     Dosage: 30 UG; QW; IM
     Route: 030
     Dates: start: 20041126, end: 20050524
  2. AVONEX [Suspect]
     Indication: MULTIPLE SCLEROSIS
     Dosage: 30 UG; BIM; IM
     Route: 030
     Dates: start: 20050602, end: 20051026
  3. AVONEX [Suspect]
     Indication: MULTIPLE SCLEROSIS
     Dosage: 30 UG; QW; IM
     Route: 030
     Dates: start: 20051026
  4. AMBIEN [Concomitant]
  5. BACLOFEN [Concomitant]
  6. VICODIN [Concomitant]
  7. THYROID TAB [Concomitant]
  8. LASIX [Concomitant]

REACTIONS (5)
  - BLOOD GLUCOSE DECREASED [None]
  - DIABETES MELLITUS [None]
  - FALL [None]
  - HEPATIC ENZYME INCREASED [None]
  - HIP FRACTURE [None]
